FAERS Safety Report 9739065 (Version 1)
Quarter: 2013Q4

REPORT INFORMATION
  Report Type: Spontaneous
  Country: IT (occurrence: IT)
  Receive Date: 20131209
  Receipt Date: 20131209
  Transmission Date: 20140711
  Serious: Yes (Hospitalization)
  Sender: FDA-Public Use
  Company Number: IT-BAYER-2013-145903

PATIENT
  Age: 53 Year
  Sex: Female

DRUGS (5)
  1. CIPROXIN [Suspect]
     Indication: OROPHARYNGEAL PAIN
     Dosage: UNK
     Route: 048
     Dates: start: 20131015, end: 20131019
  2. CLAVULIN [Suspect]
     Indication: OROPHARYNGEAL PAIN
     Dosage: UNK
     Route: 048
     Dates: start: 20131005, end: 20131012
  3. TACHIPIRINA [Suspect]
     Indication: OROPHARYNGEAL PAIN
     Dosage: UNK
     Dates: start: 20131005, end: 20131012
  4. FROBEN [Suspect]
     Indication: OROPHARYNGEAL PAIN
     Dosage: UNK
     Dates: start: 20131005, end: 20131012
  5. XANAX [Concomitant]

REACTIONS (3)
  - Adverse drug reaction [Recovering/Resolving]
  - Dermatitis bullous [Recovering/Resolving]
  - Pruritus [Recovering/Resolving]
